FAERS Safety Report 8165014-7 (Version None)
Quarter: 2012Q1

REPORT INFORMATION
  Report Type: 
  Country: None (occurrence: None)
  Receive Date: 20120227
  Receipt Date: 20120214
  Transmission Date: 20120608
  Serious: No
  Sender: FDA-Public Use
  Company Number: US-BIOGENIDEC-2012BI005913

PATIENT
  Sex: Female

DRUGS (4)
  1. AVONEX [Suspect]
     Indication: MULTIPLE SCLEROSIS
     Route: 030
     Dates: start: 19980701, end: 19990701
  2. AVONEX [Suspect]
     Route: 030
     Dates: start: 20081212, end: 20090909
  3. PRILOSEC [Concomitant]
  4. AVONEX [Suspect]
     Route: 030
     Dates: start: 20031101, end: 20031201

REACTIONS (1)
  - HAEMATOCHEZIA [None]
